FAERS Safety Report 10416002 (Version 1)
Quarter: 2014Q3

REPORT INFORMATION
  Report Type: Spontaneous
  Country: FR (occurrence: FR)
  Receive Date: 20140828
  Receipt Date: 20140828
  Transmission Date: 20150326
  Serious: Yes (Hospitalization)
  Sender: FDA-Public Use
  Company Number: FR-009507513-1408FRA011265

PATIENT
  Age: 53 Year
  Sex: Female

DRUGS (11)
  1. CANCIDAS [Suspect]
     Active Substance: CASPOFUNGIN ACETATE
     Dosage: 50 MG, QD
     Route: 042
     Dates: start: 20140702, end: 20140720
  2. CEFTAZIDIME. [Suspect]
     Active Substance: CEFTAZIDIME
     Dosage: 6 G, QD
     Route: 042
     Dates: start: 20140702, end: 20140720
  3. SPASFON [Suspect]
     Active Substance: PHLOROGLUCINOL
     Dosage: UNK
     Route: 042
     Dates: start: 20140705, end: 20140718
  4. EUPANTOL [Suspect]
     Active Substance: PANTOPRAZOLE SODIUM
     Dosage: 40 MG, QD
     Route: 042
     Dates: start: 20140709, end: 20140721
  5. VANCOMYCINE SANDOZ [Suspect]
     Active Substance: VANCOMYCIN
     Dosage: 1.5 UNK, UNK
     Route: 042
     Dates: start: 20140705, end: 20140706
  6. FUROSEMIDE RENAUDIN [Suspect]
     Active Substance: FUROSEMIDE
     Dosage: 20 MG, QD
     Route: 042
     Dates: start: 20140704, end: 20140716
  7. PRIMPERAN [Suspect]
     Active Substance: METOCLOPRAMIDE HYDROCHLORIDE
     Dosage: 30 MG, QD
     Route: 042
     Dates: start: 20140704, end: 20140717
  8. VANCOMYCINE SANDOZ [Suspect]
     Active Substance: VANCOMYCIN
     Dosage: 1 G, QD
     Route: 042
     Dates: start: 20140704, end: 20140704
  9. MORPHINE [Suspect]
     Active Substance: MORPHINE
     Dosage: 24 MG, QD
     Route: 042
     Dates: start: 20140704, end: 20140711
  10. FLAGYL [Suspect]
     Active Substance: METRONIDAZOLE\METRONIDAZOLE HYDROCHLORIDE
     Dosage: 500 MG, TID
     Route: 048
     Dates: start: 20140716, end: 20140717
  11. VANCOMYCINE SANDOZ [Suspect]
     Active Substance: VANCOMYCIN
     Dosage: 2 UNK, UNK
     Route: 042
     Dates: start: 20140707, end: 20140716

REACTIONS (1)
  - Toxic skin eruption [Recovered/Resolved]

NARRATIVE: CASE EVENT DATE: 20140717
